FAERS Safety Report 7996874-8 (Version None)
Quarter: 2011Q4

REPORT INFORMATION
  Report Type: 
  Country: None (occurrence: None)
  Receive Date: 20111221
  Receipt Date: 20111212
  Transmission Date: 20120403
  Serious: Yes (Hospitalization)
  Sender: FDA-Public Use
  Company Number: US-BRISTOL-MYERS SQUIBB COMPANY-16267361

PATIENT
  Age: 51 Year
  Sex: Male
  Weight: 60 kg

DRUGS (48)
  1. SODIUM CHLORIDE [Concomitant]
     Dosage: ALSO TAKEN: ROUTE:Q8PRN,10ML,10ML ONCE DAY 10ML IV, 10MLQ4PRN
     Route: 042
  2. ZOFRAN [Concomitant]
     Indication: NAUSEA
     Dosage: 1DF: 1 TAB 8MG  EVERY 8HRS ALSO TAKEN 4MG IV Q6PRN, 8MG IV Q8PRN,
     Route: 048
     Dates: end: 20111128
  3. ZOFRAN [Concomitant]
     Indication: VOMITING
     Dosage: 1DF: 1 TAB 8MG  EVERY 8HRS ALSO TAKEN 4MG IV Q6PRN, 8MG IV Q8PRN,
     Route: 048
     Dates: end: 20111128
  4. LOVAZA [Concomitant]
     Indication: SUPPLEMENTATION THERAPY
     Dosage: FEW DAYS GO
     Route: 048
  5. CODEINE + GUAIFENESIN [Concomitant]
     Indication: COUGH
     Dosage: 1DF: 1TABLESPOON EVERY 6 HRS
     Route: 048
     Dates: end: 20111128
  6. ACETAMINOPHEN AND HYDROCODONE BITARTRATE [Concomitant]
     Indication: PAIN
     Dosage: 1DF:1 TAB Q6HPRN
     Route: 048
  7. BENZONATATE [Concomitant]
     Indication: COUGH
     Route: 048
  8. CERUMENEX [Concomitant]
     Indication: CERUMEN IMPACTION
     Dosage: OTIC
  9. DASATINIB [Suspect]
     Indication: NON-SMALL CELL LUNG CANCER
     Dosage: LAST DOSE:29NOV11. ALSO TAKEN 20MG LOT#9K51593,OK59542,1G67348 50MG LOT#OF63547,1A71387. 50MG/20MG
     Route: 048
     Dates: start: 20110514, end: 20111127
  10. NASONEX [Concomitant]
     Indication: HYPERSENSITIVITY
     Dosage: 1DF:2PUFF ALSO TAKEN 2SPRAY TWICE DAILY PRN.
     Route: 045
     Dates: end: 20111128
  11. COMPAZINE [Concomitant]
     Indication: NAUSEA
     Dosage: 1DF:10MG 1TAB EVERY 6 HRS.
     Route: 048
  12. DENOSUMAB [Concomitant]
     Indication: METASTASES TO BONE
     Dosage: UNDER SKIN MONTHLY LAST MONTH?
     Route: 058
  13. MORPHINE [Concomitant]
     Dosage: ROUTE:UD.
     Route: 042
  14. MULTI-VITAMIN [Concomitant]
     Indication: SUPPLEMENTATION THERAPY
     Dosage: 1DF:1 TABS UNK MG
     Route: 048
  15. PROTONIX [Concomitant]
     Dosage: ORAL
     Route: 042
  16. HYDROCODONE [Concomitant]
     Indication: PAIN
     Dosage: 1DF:5/500MG 1TAB EVERY 6HRS
     Route: 048
  17. ASPIRIN [Concomitant]
     Route: 048
     Dates: end: 20111128
  18. BENAZEPRIL HCL + HCTZ [Concomitant]
     Indication: BLOOD PRESSURE
     Dosage: 20/12.5MG 1/2 TAB
     Route: 048
     Dates: end: 20111129
  19. CLINDAMYCIN [Concomitant]
     Indication: RASH
     Dosage: FORMULATION: GEL: APPLY
  20. FISH OIL [Concomitant]
     Route: 048
  21. SENNOSIDE [Concomitant]
     Indication: CONSTIPATION
     Dosage: 1DF:3 TABS BID
     Route: 048
  22. FOLIC ACID [Concomitant]
     Indication: SUPPLEMENTATION THERAPY
     Dosage: 1DF:1MG 1 TAB
     Route: 048
     Dates: end: 20111129
  23. GLUCOSAMINE [Concomitant]
     Indication: SUPPLEMENTATION THERAPY
     Dosage: 2CAPS UNKMG FEW DAYS
     Route: 048
  24. ATROVENT [Concomitant]
     Dosage: Q6HRS
     Route: 055
  25. CEFEPIME [Concomitant]
     Dosage: EVERY HR
     Route: 042
  26. ZOLPIDEM [Concomitant]
     Dosage: 1DF:1-2 TABS OF 5MG AT BEDTIME
     Route: 048
  27. SENNA [Concomitant]
     Indication: CONSTIPATION
     Route: 048
  28. METHYLPREDNISOLONE SODIUM SUCCINATE [Concomitant]
     Dosage: SHORT INFUSION EVERY 8HRS.
     Route: 042
  29. LEVOFLOXACIN [Concomitant]
     Indication: PNEUMONIA
     Dosage: 1 TAB 500MG.
     Route: 048
  30. METHOCARBAMOL [Concomitant]
     Indication: MUSCLE SPASMS
     Dosage: 1DF:1 TAB 500MG. EVERY 8 HRS
     Route: 048
  31. ERLOTINIB HYDROCHLORIDE [Suspect]
     Indication: NON-SMALL CELL LUNG CANCER
     Dosage: LAST DOSE:30NOV11.LOT 8686801,9871702,9871702,0953101.
     Route: 048
     Dates: start: 20110514
  32. COLOXYL + SENNA [Concomitant]
     Dosage: 1DF:3 TABS.
     Route: 048
  33. VANCOMYCIN HCL [Concomitant]
     Route: 042
  34. IBUPROFEN (ADVIL) [Concomitant]
     Indication: MUSCULOSKELETAL STIFFNESS
     Dosage: 1 TAB 200MG EVERY 6HRS FEW DAYS AGO
     Route: 048
  35. CALCIUM [Concomitant]
     Indication: SUPPLEMENTATION THERAPY
     Dosage: 1DF:1TAB UNK MG
     Route: 048
  36. LOVENOX [Concomitant]
     Dosage: RTE:UNDER SKIN,EVERY12HRS
     Route: 058
  37. PREDNISONE TAB [Concomitant]
     Dosage: 20MG TA[ERING DOSE 1DF:2 TABS FOR 2 WKS THEN 1 AND 1/2 TABS DAILY FOR 2 WKS
     Dates: start: 20111210
  38. NALOXONE [Concomitant]
     Route: 042
  39. LEVALBUTEROL HCL [Concomitant]
     Indication: DYSPNOEA
     Dosage: Q6HRS
     Route: 055
  40. LORAZEPAM [Concomitant]
     Dosage: EVERY 8 HRS
     Route: 048
  41. GUAIFENESIN AND DEXTROMETHORPHAN HBR [Concomitant]
     Dosage: EVERY 6HRS
     Route: 048
  42. ONDANSETRON [Concomitant]
     Indication: NAUSEA
     Dosage: 8 HRS
     Route: 048
  43. DOCUSATE SODIUM [Concomitant]
     Indication: CONSTIPATION
     Dosage: 1DF:3 TABS BID
     Route: 048
  44. AMBIEN [Concomitant]
     Dosage: FORMULATION: 1-2 TABS
     Route: 048
     Dates: end: 20111128
  45. METOCLOPRAMIDE [Concomitant]
     Dosage: Q4PRN SHORT INF
  46. COMPAZINE [Concomitant]
     Indication: VOMITING
     Dosage: 1DF:10MG 1TAB EVERY 6 HRS.
     Route: 048
  47. LOVASTATIN [Concomitant]
     Indication: BLOOD CHOLESTEROL
     Dosage: 1 TAB 20MG AT BEDTIME.
     Route: 048
     Dates: end: 20111129
  48. MS CONTIN [Concomitant]
     Indication: PAIN
     Dosage: EXTENDED RELEASE ALSO IMMEDIATE RELEASE 15MG,1/2-1 TABS PO EVERY 4 HRS AS NEEDED
     Route: 048

REACTIONS (5)
  - HYPOXIA [None]
  - DYSPNOEA [None]
  - PULMONARY EMBOLISM [None]
  - PULMONARY HYPERTENSION [None]
  - DEEP VEIN THROMBOSIS [None]
